FAERS Safety Report 8935485 (Version 1)
Quarter: 2012Q4

REPORT INFORMATION
  Report Type: Spontaneous
  Country: US (occurrence: None)
  Receive Date: 20121128
  Receipt Date: 20121128
  Transmission Date: 20130627
  Serious: Yes (Hospitalization)
  Sender: FDA-Public Use
  Company Number: None

PATIENT
  Age: 77 Year
  Sex: Female
  Weight: 56.81 kg

DRUGS (8)
  1. ATENOLOL [Suspect]
     Indication: HYPERTENSION
     Route: 048
  2. BISOPROLOL [Suspect]
     Route: 048
  3. FOSAMAX [Concomitant]
  4. ASA [Concomitant]
  5. CLONAZEPAM [Concomitant]
  6. LISINOPRIL [Concomitant]
  7. OMEPRAZOLE [Concomitant]
  8. ROSUVASTATIN [Concomitant]

REACTIONS (4)
  - Syncope [None]
  - Hyponatraemia [None]
  - Hypotension [None]
  - Bradycardia [None]
